FAERS Safety Report 8157324-4 (Version None)
Quarter: 2012Q1

REPORT INFORMATION
  Report Type: 
  Country: None (occurrence: None)
  Receive Date: 20120222
  Receipt Date: 20120211
  Transmission Date: 20120608
  Serious: Yes (Other)
  Sender: FDA-Public Use
  Company Number: IN-ROCHE-1041874

PATIENT
  Sex: Female

DRUGS (7)
  1. GEMCITABINE [Concomitant]
  2. FULVESTRANT [Concomitant]
  3. HERCEPTIN [Suspect]
     Indication: BREAST CANCER
     Dates: start: 20080101
  4. LAPATINIB [Concomitant]
  5. FLUOROURACIL [Concomitant]
  6. XELODA [Suspect]
     Indication: BREAST CANCER
  7. PACLITAXEL [Concomitant]

REACTIONS (1)
  - DISEASE PROGRESSION [None]
